FAERS Safety Report 16131407 (Version 1)
Quarter: 2019Q1

REPORT INFORMATION
  Report Type: Spontaneous
  Country: FR (occurrence: FR)
  Receive Date: 20190328
  Receipt Date: 20190328
  Transmission Date: 20190418
  Serious: Yes (Life-Threatening, Other)
  Sender: FDA-Public Use
  Company Number: FR-MYLANLABS-2019M1029211

PATIENT
  Age: 70 Year
  Sex: Female
  Weight: 65 kg

DRUGS (4)
  1. SIFROL [Concomitant]
     Active Substance: PRAMIPEXOLE
     Dosage: UNK
     Dates: start: 2015, end: 20190121
  2. MODOPAR [Concomitant]
     Active Substance: BENSERAZIDE HYDROCHLORIDE\LEVODOPA
     Dosage: UNK
     Dates: start: 2015, end: 20190121
  3. RASAGILINE. [Concomitant]
     Active Substance: RASAGILINE
     Dosage: UNK
     Dates: start: 2015, end: 20190121
  4. FONDAPARINUX [Suspect]
     Active Substance: FONDAPARINUX
     Indication: VENOUS THROMBOSIS
     Dosage: 1 DOSAGE FORM, QD
     Route: 058
     Dates: start: 20190115, end: 20190124

REACTIONS (3)
  - Haematoma [Recovering/Resolving]
  - Shock haemorrhagic [Recovered/Resolved]
  - Anaemia [Recovered/Resolved]

NARRATIVE: CASE EVENT DATE: 201901
